FAERS Safety Report 5430410-5 (Version None)
Quarter: 2007Q3

REPORT INFORMATION
  Report Type: 
  Country: None (occurrence: None)
  Receive Date: 20070828
  Receipt Date: 20070821
  Transmission Date: 20080115
  Serious: Yes (Hospitalization)
  Sender: FDA-Public Use
  Company Number: US021087

PATIENT
  Age: 86 Year
  Sex: Male
  Weight: 75.7507 kg

DRUGS (3)
  1. PROVIGIL [Suspect]
     Indication: NARCOLEPSY
     Dosage: 200 MG QD ORAL
     Route: 048
     Dates: start: 20050101, end: 20070817
  2. MEVACOR [Concomitant]
  3. ADVAIR DISKUS 100/50 [Concomitant]

REACTIONS (2)
  - IDIOPATHIC THROMBOCYTOPENIC PURPURA [None]
  - RASH MACULAR [None]
